FAERS Safety Report 21994452 (Version 2)
Quarter: 2024Q1

REPORT INFORMATION
  Report Type: Report from Study
  Country: CA (occurrence: CA)
  Receive Date: 20230215
  Receipt Date: 20240228
  Transmission Date: 20240410
  Serious: Yes (Other)
  Sender: FDA-Public Use
  Company Number: CA-TAKEDA-2018TUS008396

PATIENT
  Age: 56 Year
  Sex: Male

DRUGS (9)
  1. VEDOLIZUMAB [Suspect]
     Active Substance: VEDOLIZUMAB
     Indication: Colitis ulcerative
     Dosage: 300 MILLIGRAM
     Route: 042
     Dates: start: 20170824
  2. VEDOLIZUMAB [Suspect]
     Active Substance: VEDOLIZUMAB
     Dosage: 300 MILLIGRAM
     Route: 042
  3. VEDOLIZUMAB [Suspect]
     Active Substance: VEDOLIZUMAB
     Dosage: 300 MILLIGRAM
     Route: 042
  4. VEDOLIZUMAB [Suspect]
     Active Substance: VEDOLIZUMAB
     Dosage: 300 MILLIGRAM, Q7WEEKS
     Route: 042
     Dates: start: 20180831
  5. VEDOLIZUMAB [Suspect]
     Active Substance: VEDOLIZUMAB
     Dosage: 300 MILLIGRAM, Q7WEEKS
     Route: 042
  6. VEDOLIZUMAB [Suspect]
     Active Substance: VEDOLIZUMAB
     Dosage: 300 MILLIGRAM, Q7WEEKS
     Route: 042
  7. Salofalk [Concomitant]
     Dosage: UNK
  8. CITALOPRAM [Concomitant]
     Active Substance: CITALOPRAM HYDROBROMIDE
     Dosage: UNK
  9. INDAPAMIDE\PERINDOPRIL [Concomitant]
     Active Substance: INDAPAMIDE\PERINDOPRIL
     Dosage: UNK

REACTIONS (3)
  - Blood pressure increased [Not Recovered/Not Resolved]
  - Heart rate increased [Unknown]
  - Off label use [Unknown]

NARRATIVE: CASE EVENT DATE: 20180329
